FAERS Safety Report 6570994-7 (Version None)
Quarter: 2010Q1

REPORT INFORMATION
  Report Type: 
  Country: None (occurrence: None)
  Receive Date: 20100203
  Receipt Date: 20100203
  Transmission Date: 20100710
  Serious: Yes (Life-Threatening, Hospitalization)
  Sender: FDA-Public Use
  Company Number: None

PATIENT
  Sex: Female
  Weight: 99.7913 kg

DRUGS (2)
  1. ORTHO TRI-CYCLEN [Suspect]
     Indication: CONTRACEPTION
     Dosage: ONE PILL ONCE DAILY PO
     Route: 048
     Dates: start: 20070701, end: 20090817
  2. ORTHO TRI-CYCLEN [Suspect]
     Indication: MIGRAINE
     Dosage: ONE PILL ONCE DAILY PO
     Route: 048
     Dates: start: 20070701, end: 20090817

REACTIONS (4)
  - COAGULOPATHY [None]
  - DYSPNOEA [None]
  - HEART RATE INCREASED [None]
  - THROMBOSIS [None]
